FAERS Safety Report 5595655-2 (Version None)
Quarter: 2008Q1

REPORT INFORMATION
  Report Type: 
  Country: None (occurrence: None)
  Receive Date: 20080116
  Receipt Date: 20080103
  Transmission Date: 20080703
  Serious: Yes (Hospitalization)
  Sender: FDA-Public Use
  Company Number: 235718K07USA

PATIENT
  Age: 34 Year
  Sex: Female

DRUGS (5)
  1. REBIF [Suspect]
     Indication: MULTIPLE SCLEROSIS
     Dosage: SEE IMAGE
     Route: 058
     Dates: start: 20040714, end: 20070530
  2. REBIF [Suspect]
     Indication: MULTIPLE SCLEROSIS
     Dosage: SEE IMAGE
     Route: 058
     Dates: start: 20070618, end: 20070901
  3. ATIVAN [Suspect]
     Indication: ANXIETY
     Dosage: 1 MG, INTRAVENOUS (NOT OTHERWISE SPECIFIED); 10 MG, ONCE, INTRAVENOUS (NOT OTHERWISE SPECIFIED)
     Dates: start: 20070531
  4. CYTOXAN [Concomitant]
  5. STEROID (CORTICOSTEROID NOS) [Concomitant]

REACTIONS (4)
  - ACCIDENTAL OVERDOSE [None]
  - INCORRECT DOSE ADMINISTERED [None]
  - NEUTROPENIA [None]
  - SOMNOLENCE [None]
